FAERS Safety Report 4846222-7 (Version None)
Quarter: 2005Q4

REPORT INFORMATION
  Report Type: 
  Country: None (occurrence: None)
  Receive Date: 20051201
  Receipt Date: 20051125
  Transmission Date: 20060501
  Serious: Yes (Hospitalization)
  Sender: FDA-Public Use
  Company Number: 6017772

PATIENT
  Age: 52 Year
  Sex: Male

DRUGS (2)
  1. DETENSIEL (10 MG, FILM-COATED TABLET) (BISOPROLOL FUMARATE) [Suspect]
     Dosage: 10 MG, ORAL
     Route: 048
  2. COTAREG (80 MG, FILM-COATED TABLET) (HYDROCHLOROTHIAZIDE, VALSARTAN) [Suspect]
     Dosage: 80 MG (80 MG (80 MG, 1 IN 1 D), ORAL
     Route: 048

REACTIONS (1)
  - NEURODERMATITIS [None]
